FAERS Safety Report 17047876 (Version 1)
Quarter: 2019Q4

REPORT INFORMATION
  Report Type: Spontaneous
  Country: CN (occurrence: CN)
  Receive Date: 20191119
  Receipt Date: 20191119
  Transmission Date: 20200122
  Serious: Yes (Other)
  Sender: FDA-Public Use
  Company Number: CN-PFIZER INC-2019496282

PATIENT
  Age: 85 Year
  Sex: Female
  Weight: 45 kg

DRUGS (1)
  1. ZOLOFT [Suspect]
     Active Substance: SERTRALINE HYDROCHLORIDE
     Indication: ANXIETY
     Dosage: 25 MG, 1X/DAY
     Route: 048
     Dates: start: 20190309, end: 20191114

REACTIONS (4)
  - Tremor [Recovering/Resolving]
  - Emotional distress [Recovering/Resolving]
  - Tachycardia [Recovering/Resolving]
  - Electrocardiogram ST-T segment abnormal [Recovering/Resolving]

NARRATIVE: CASE EVENT DATE: 20190322
